FAERS Safety Report 25888341 (Version 3)
Quarter: 2025Q4

REPORT INFORMATION
  Report Type: Spontaneous
  Country: US (occurrence: US)
  Receive Date: 20251007
  Receipt Date: 20251113
  Transmission Date: 20260117
  Serious: No
  Sender: CIPLA
  Company Number: US-CIPLA LTD.-2025US12156

PATIENT

DRUGS (4)
  1. ALBUTEROL [Suspect]
     Active Substance: ALBUTEROL
     Indication: Wheezing
     Dosage: 90 MCG, PRN (1 PUFF EVERY 4 HOURS AS NEEDED), REGULAR USER, VIA MOUTH
  2. ALBUTEROL [Suspect]
     Active Substance: ALBUTEROL
     Dosage: 90 MCG, PRN (1 PUFF EVERY 4 HOURS AS NEEDED), VIA MOUTH
     Dates: start: 2025
  3. ALBUTEROL [Suspect]
     Active Substance: ALBUTEROL
     Dosage: 90 MCG, PRN (1 PUFF EVERY 4 HOURS AS NEEDED), VIA MOUTH (SPARE INHALER)
     Dates: start: 202505
  4. ALBUTEROL [Suspect]
     Active Substance: ALBUTEROL
     Dosage: 90 MCG, PRN (1 PUFF EVERY 4 HOURS AS NEEDED), VIA MOUTH (SECOND FAILED INHALER)
     Dates: start: 2025, end: 2025

REACTIONS (5)
  - Dyspnoea [Unknown]
  - Drug dose omission by device [Unknown]
  - Device delivery system issue [Unknown]
  - Product container seal issue [Unknown]
  - Product quality issue [Unknown]

NARRATIVE: CASE EVENT DATE: 20250101
